FAERS Safety Report 11957125 (Version 4)
Quarter: 2016Q2

REPORT INFORMATION
  Report Type: Report from Study
  Country: US (occurrence: US)
  Receive Date: 20160126
  Receipt Date: 20160601
  Transmission Date: 20160815
  Serious: Yes (Death, Hospitalization)
  Sender: FDA-Public Use
  Company Number: US-ACTELION-A-NJ2016-130316

PATIENT
  Age: 72 Year
  Sex: Female

DRUGS (2)
  1. TRACLEER [Suspect]
     Active Substance: BOSENTAN
     Indication: PULMONARY ARTERIAL HYPERTENSION
     Dosage: 62.5 MG, BID
     Route: 048
     Dates: end: 20160412
  2. WARFARIN [Concomitant]
     Active Substance: WARFARIN

REACTIONS (11)
  - Clostridium difficile infection [Not Recovered/Not Resolved]
  - Abdominal pain upper [Not Recovered/Not Resolved]
  - Liver injury [Fatal]
  - Pneumonia [Not Recovered/Not Resolved]
  - Colitis ischaemic [Fatal]
  - Multiple organ dysfunction syndrome [Fatal]
  - Limb discomfort [Unknown]
  - Staphylococcal sepsis [Fatal]
  - Renal failure [Fatal]
  - Staphylococcal infection [Not Recovered/Not Resolved]
  - Abdominal discomfort [Unknown]

NARRATIVE: CASE EVENT DATE: 20160412
